FAERS Safety Report 6368902-7 (Version None)
Quarter: 2009Q3

REPORT INFORMATION
  Report Type: 
  Country: None (occurrence: None)
  Receive Date: 20090918
  Receipt Date: 20090918
  Transmission Date: 20100115
  Serious: Yes (Life-Threatening, Other)
  Sender: FDA-Public Use
  Company Number: None

PATIENT
  Sex: Male
  Weight: 65.7716 kg

DRUGS (3)
  1. VENLAFAXINE [Suspect]
     Indication: ANXIETY
     Dosage: 75 MG. 2 TIMES A DAY PO
     Route: 048
     Dates: start: 20090703, end: 20090917
  2. VENLAFAXINE [Suspect]
     Indication: DEPRESSION
     Dosage: 75 MG. 2 TIMES A DAY PO
     Route: 048
     Dates: start: 20090703, end: 20090917
  3. SEREQUEL [Concomitant]

REACTIONS (4)
  - AGITATION [None]
  - ANGER [None]
  - IMPULSIVE BEHAVIOUR [None]
  - INTENTIONAL SELF-INJURY [None]
